FAERS Safety Report 10207003 (Version 2)
Quarter: 2014Q2

REPORT INFORMATION
  Report Type: Spontaneous
  Country: US (occurrence: None)
  Receive Date: 20140527
  Receipt Date: 20140605
  Transmission Date: 20141212
  Serious: Yes (Hospitalization)
  Sender: FDA-Public Use
  Company Number: UTC-046935

PATIENT
  Age: 39 Year
  Sex: Female
  Weight: 54 kg

DRUGS (3)
  1. REMODULIN [Suspect]
     Indication: PULMONARY ARTERIAL HYPERTENSION
     Dosage: 0.03 UG/KG, CONTINUING, IV DRIP
     Route: 041
     Dates: start: 20140107
  2. LETAIRIS (AMBRISENTAN) UNKNOWN [Concomitant]
  3. REVATIO (SILDENAFIL CITRATE) UNKNOWN [Concomitant]

REACTIONS (2)
  - Septic shock [None]
  - Peritonitis bacterial [None]
